FAERS Safety Report 9744563 (Version 1)
Quarter: 2013Q4

REPORT INFORMATION
  Report Type: Spontaneous
  Country: US (occurrence: US)
  Receive Date: 20131210
  Receipt Date: 20131210
  Transmission Date: 20140711
  Serious: No
  Sender: FDA-Public Use
  Company Number: US-B.I. PHARMACEUTICALS,INC./RIDGEFIELD-2013-BI-39395BP

PATIENT
  Age: 84 Year
  Sex: Female
  Weight: 61 kg

DRUGS (2)
  1. PRADAXA [Suspect]
     Indication: ATRIAL FLUTTER
     Dosage: 300 MG
     Route: 048
     Dates: start: 2012, end: 201302
  2. LEVOTHYROXINE [Concomitant]
     Indication: THYROIDECTOMY
     Dosage: 75 MCG
     Route: 048

REACTIONS (2)
  - Off label use [Recovered/Resolved]
  - Atrial flutter [Not Recovered/Not Resolved]
